FAERS Safety Report 11717493 (Version 2)
Quarter: 2016Q1

REPORT INFORMATION
  Report Type: Spontaneous
  Country: US (occurrence: US)
  Receive Date: 20151110
  Receipt Date: 20160107
  Transmission Date: 20160525
  Serious: Yes (Other)
  Sender: FDA-Public Use
  Company Number: US-AMGEN-USASP2015116365

PATIENT
  Age: 63 Year
  Sex: Female

DRUGS (1)
  1. ARANESP [Suspect]
     Active Substance: DARBEPOETIN ALFA
     Indication: ANAEMIA
     Dosage: 120 MUG, Q2WK
     Route: 065
     Dates: start: 20150609

REACTIONS (6)
  - Drug ineffective [Unknown]
  - Transferrin saturation increased [Unknown]
  - Haemoglobin decreased [Unknown]
  - Reticulocyte count decreased [Unknown]
  - Hypertension [Unknown]
  - Serum ferritin abnormal [Unknown]
